FAERS Safety Report 15013244 (Version 1)
Quarter: 2018Q2

REPORT INFORMATION
  Report Type: Spontaneous
  Country: US (occurrence: US)
  Receive Date: 20180614
  Receipt Date: 20180614
  Transmission Date: 20180711
  Serious: No
  Sender: FDA-Public Use
  Company Number: US-BAUSCH-BL-2017-020016

PATIENT
  Age: 75 Year
  Sex: Male
  Weight: 142.1 kg

DRUGS (3)
  1. RELISTOR [Suspect]
     Active Substance: METHYLNALTREXONE BROMIDE
     Indication: CONSTIPATION
     Dosage: 12 MG/0.6 ML SINGLE-USE PRE-FILLED SYRINGES, STARTED TWO WEEKS AGO
     Route: 058
     Dates: start: 201706
  2. RELISTOR [Suspect]
     Active Substance: METHYLNALTREXONE BROMIDE
     Dosage: ABOUT 4-5 MONTHS AGO.
     Route: 058
     Dates: start: 2017
  3. LACTULOSE. [Suspect]
     Active Substance: LACTULOSE
     Indication: CONSTIPATION
     Dosage: 1 TO 2 TABLESPOONS DAILY, STARTED APPROXIMATELY TWO WEEKS AGO
     Route: 065
     Dates: start: 201706

REACTIONS (2)
  - Constipation [Not Recovered/Not Resolved]
  - Drug ineffective [Unknown]

NARRATIVE: CASE EVENT DATE: 201706
